FAERS Safety Report 6768703-1 (Version None)
Quarter: 2010Q2

REPORT INFORMATION
  Report Type: 
  Country: None (occurrence: None)
  Receive Date: 20100614
  Receipt Date: 20100601
  Transmission Date: 20101027
  Serious: Yes (Hospitalization, Other)
  Sender: FDA-Public Use
  Company Number: US-ELI_LILLY_AND_COMPANY-US201006001152

PATIENT
  Age: 52 Year
  Sex: Female

DRUGS (2)
  1. GEMCITABINE HYDROCHLORIDE [Suspect]
     Indication: UTERINE LEIOMYOSARCOMA
     Dosage: 675 MG/M2, DAYS 1 AND 8
  2. DOCETAXEL [Concomitant]
     Indication: LEIOMYOSARCOMA
     Dosage: 75 MG/M2, DAY 1

REACTIONS (6)
  - C-REACTIVE PROTEIN INCREASED [None]
  - PYREXIA [None]
  - RED BLOOD CELL SEDIMENTATION RATE INCREASED [None]
  - SEROMA [None]
  - THROMBOCYTOSIS [None]
  - VASCULITIS [None]
